FAERS Safety Report 10196709 (Version 1)
Quarter: 2020Q3

REPORT INFORMATION
  Report Type: Spontaneous
  Country: PT (occurrence: PT)
  Receive Date: 20140527
  Receipt Date: 20140527
  Transmission Date: 20201105
  Serious: Yes (Life-Threatening, Other)
  Sender: FDA-Public Use
  Company Number: PT-PFIZER INC-2014142602

PATIENT
  Age: 88 Year
  Sex: Female

DRUGS (6)
  1. NITRODERM TTS5 [Concomitant]
     Indication: MYOCARDIAL ISCHAEMIA
     Dosage: UNK
  2. CORDARONE [Suspect]
     Active Substance: AMIODARONE HYDROCHLORIDE
     Indication: ATRIAL FIBRILLATION
     Dosage: UNK
     Route: 048
     Dates: start: 201207
  3. ETORICOXIB. [Suspect]
     Active Substance: ETORICOXIB
     Indication: PAIN
     Dosage: 1 DF, AS NEEDED
     Route: 048
     Dates: end: 20140211
  4. PRADAXA [Interacting]
     Active Substance: DABIGATRAN ETEXILATE MESYLATE
     Indication: ATRIAL FIBRILLATION
     Dosage: 110 MG, 2X/DAY
     Route: 048
     Dates: end: 20140211
  5. ZALDIAR [Concomitant]
     Active Substance: ACETAMINOPHEN\TRAMADOL HYDROCHLORIDE
     Indication: PAIN
     Dosage: UNK
  6. LASIX [Concomitant]
     Active Substance: FUROSEMIDE
     Indication: MYOCARDIAL ISCHAEMIA
     Dosage: UNK
     Dates: end: 20140220

REACTIONS (6)
  - Blood urea increased [Unknown]
  - Anaemia [Recovering/Resolving]
  - Drug interaction [Unknown]
  - Haematochezia [Recovered/Resolved]
  - Melaena [Recovered/Resolved]
  - Blood creatinine increased [Unknown]

NARRATIVE: CASE EVENT DATE: 20140211
